FAERS Safety Report 7170074-6 (Version None)
Quarter: 2010Q4

REPORT INFORMATION
  Report Type: 
  Country: None (occurrence: None)
  Receive Date: 20101123
  Receipt Date: 20100817
  Transmission Date: 20110411
  Serious: No
  Sender: FDA-Public Use
  Company Number: 017279

PATIENT
  Sex: Female
  Weight: 58.5 kg

DRUGS (1)
  1. CIMZIA [Suspect]
     Indication: CROHN'S DISEASE
     Dosage: (400 MG 1X/2 WEEKS SUBCUTANEOUS)
     Route: 058

REACTIONS (6)
  - ABDOMINAL PAIN [None]
  - FEELING HOT [None]
  - HEADACHE [None]
  - INFLUENZA LIKE ILLNESS [None]
  - PAIN [None]
  - PYREXIA [None]
